FAERS Safety Report 10914657 (Version 1)
Quarter: 2015Q1

REPORT INFORMATION
  Report Type: Report from Study
  Country: BR (occurrence: BR)
  Receive Date: 20150313
  Receipt Date: 20150313
  Transmission Date: 20150721
  Serious: Yes (Hospitalization, Other)
  Sender: FDA-Public Use
  Company Number: BR-ABBVIE-10P-020-0618821-00

PATIENT
  Sex: Female
  Weight: 80 kg

DRUGS (7)
  1. PREDNISONE. [Concomitant]
     Active Substance: PREDNISONE
     Indication: ARTHRITIS
     Route: 048
     Dates: start: 2005
  2. ACECLOFENAC [Concomitant]
     Active Substance: ACECLOFENAC
     Indication: PAIN
     Route: 048
  3. METOPROLOL SUCCINATE. [Concomitant]
     Active Substance: METOPROLOL SUCCINATE
     Indication: BLOOD PRESSURE
     Route: 048
     Dates: start: 2008
  4. OSCAL D [Concomitant]
     Active Substance: CALCIUM CARBONATE\CHOLECALCIFEROL
     Indication: BONE DISORDER
     Route: 048
  5. HUMIRA [Suspect]
     Active Substance: ADALIMUMAB
     Indication: RHEUMATOID ARTHRITIS
     Route: 058
     Dates: start: 2005
  6. CALCITRAN B12 [Concomitant]
     Indication: OSTEOPOROSIS PROPHYLAXIS
     Dates: start: 2008
  7. TIBOLONE [Concomitant]
     Active Substance: TIBOLONE
     Indication: HORMONE REPLACEMENT THERAPY

REACTIONS (17)
  - Nodule [Not Recovered/Not Resolved]
  - Osteopenia [Unknown]
  - Hand deformity [Recovering/Resolving]
  - Dyspnoea [Recovering/Resolving]
  - Hyperkeratosis [Not Recovered/Not Resolved]
  - Pulmonary oedema [Recovered/Resolved]
  - Foot deformity [Recovered/Resolved]
  - Post procedural complication [Unknown]
  - Arthropathy [Recovered/Resolved]
  - Arthritis [Recovering/Resolving]
  - Osteoarthritis [Not Recovered/Not Resolved]
  - Finger deformity [Not Recovered/Not Resolved]
  - Appendix disorder [Recovered/Resolved]
  - Respiratory disorder [Recovered/Resolved]
  - Arthritis [Unknown]
  - Pulmonary mass [Recovering/Resolving]
  - Blood pressure abnormal [Recovering/Resolving]

NARRATIVE: CASE EVENT DATE: 2008
